FAERS Safety Report 21756080 (Version 1)
Quarter: 2022Q4

REPORT INFORMATION
  Report Type: Spontaneous
  Country: GB (occurrence: GB)
  Receive Date: 20221220
  Receipt Date: 20221220
  Transmission Date: 20230112
  Serious: Yes (Other)
  Sender: FDA-Public Use
  Company Number: GB-MHRA-MED-202211291240083240-CBWDR

PATIENT
  Sex: Female

DRUGS (2)
  1. CLARITHROMYCIN [Interacting]
     Active Substance: CLARITHROMYCIN
     Indication: Otitis media
     Dosage: 500 MILLIGRAM, BID (EVERY 12 HOURS)
     Route: 065
     Dates: start: 20221125
  2. TACROLIMUS [Interacting]
     Active Substance: TACROLIMUS
     Indication: Product used for unknown indication
     Dosage: 4 MILLIGRAM, BID
     Route: 065

REACTIONS (3)
  - Vomiting [Recovering/Resolving]
  - Labelled drug-drug interaction medication error [Unknown]
  - Drug level increased [Unknown]

NARRATIVE: CASE EVENT DATE: 20221125
